FAERS Safety Report 10378004 (Version 2)
Quarter: 2014Q3

REPORT INFORMATION
  Report Type: Spontaneous
  Country: JP (occurrence: None)
  Receive Date: 20140807
  Receipt Date: 20140825
  Transmission Date: 20150326
  Serious: Yes (Other)
  Sender: FDA-Public Use
  Company Number: ADR-2014-01367

PATIENT
  Age: 8 Year
  Sex: Male

DRUGS (4)
  1. PHENOBARBITAL. [Suspect]
     Active Substance: PHENOBARBITAL
     Indication: DYSTONIA
  2. BOTOX (BOTULINUM TOXIN TYPE A) [Concomitant]
  3. LIORESAL [Suspect]
     Active Substance: BACLOFEN
     Indication: DYSTONIA
  4. TRICLOFOS SODIUM [Concomitant]
     Active Substance: TRICLOFOS SODIUM

REACTIONS (8)
  - Pneumonia aspiration [None]
  - Clonus [None]
  - Wheezing [None]
  - No therapeutic response [None]
  - Dysphagia [None]
  - Joint dislocation [None]
  - Cervical myelopathy [None]
  - Cyst [None]

NARRATIVE: CASE EVENT DATE: 20140101
